FAERS Safety Report 25955225 (Version 1)
Quarter: 2025Q4

REPORT INFORMATION
  Report Type: Spontaneous
  Country: CN (occurrence: CN)
  Receive Date: 20251024
  Receipt Date: 20251024
  Transmission Date: 20260117
  Serious: Yes (Other)
  Sender: BAXTER
  Company Number: None

PATIENT
  Age: 50 Year
  Sex: Female
  Weight: 73 kg

DRUGS (4)
  1. CYCLOPHOSPHAMIDE [Suspect]
     Active Substance: CYCLOPHOSPHAMIDE
     Indication: Breast cancer female
     Dosage: 1 G, QD
     Route: 041
     Dates: start: 20250925, end: 20250925
  2. DEXTROSE [Suspect]
     Active Substance: DEXTROSE MONOHYDRATE
     Indication: Medication dilution
     Dosage: 600 ML, QD WITH PACLITAXEL
     Route: 041
     Dates: start: 20250925, end: 20250925
  3. SODIUM CHLORIDE [Suspect]
     Active Substance: SODIUM CHLORIDE
     Indication: Medication dilution
     Dosage: 50 ML, QD WITH CYCLOPHOSPHAMIDE
     Route: 041
     Dates: start: 20250925, end: 20250925
  4. PACLITAXEL [Suspect]
     Active Substance: PACLITAXEL
     Indication: Breast cancer female
     Dosage: 270 MG, QD
     Route: 041
     Dates: start: 20250925, end: 20250925

REACTIONS (1)
  - Myelosuppression [Unknown]

NARRATIVE: CASE EVENT DATE: 20251002
